FAERS Safety Report 21598173 (Version 1)
Quarter: 2022Q4

REPORT INFORMATION
  Report Type: Report from Study
  Country: US (occurrence: US)
  Receive Date: 20221115
  Receipt Date: 20221115
  Transmission Date: 20230113
  Serious: Yes (Hospitalization)
  Sender: FDA-Public Use
  Company Number: US-PFIZER INC-PV202200101755

PATIENT
  Age: 73 Year
  Sex: Female
  Weight: 75.6 kg

DRUGS (2)
  1. INVESTIGATIONAL PRODUCT [Suspect]
     Active Substance: INVESTIGATIONAL PRODUCT
     Indication: Leiomyosarcoma
     Dosage: 1 MG/KG, DAYS 1 AND 8 OF 21 DAY CYCLE
     Route: 042
     Dates: start: 20221026
  2. DOXORUBICIN HYDROCHLORIDE [Suspect]
     Active Substance: DOXORUBICIN HYDROCHLORIDE
     Indication: Leiomyosarcoma
     Dosage: 60 MG/M2, DAY 1 OF 21 DAY CYCLE
     Route: 042
     Dates: start: 20221026

REACTIONS (2)
  - Mitral valve disease [Not Recovered/Not Resolved]
  - Endocarditis [Not Recovered/Not Resolved]

NARRATIVE: CASE EVENT DATE: 20221110
